FAERS Safety Report 15804651 (Version 1)
Quarter: 2019Q1

REPORT INFORMATION
  Report Type: Spontaneous
  Country: US (occurrence: US)
  Receive Date: 20190109
  Receipt Date: 20190109
  Transmission Date: 20190417
  Serious: No
  Sender: FDA-Public Use
  Company Number: US-TARO-2018TAR00875

PATIENT
  Sex: Female

DRUGS (1)
  1. IBUPROFEN ORAL SUSPENSION 100 MG/5 ML-RX [Suspect]
     Active Substance: IBUPROFEN
     Dosage: UNK UNK, ONCE
     Route: 048
     Dates: start: 20181212, end: 20181212

REACTIONS (5)
  - Dysgeusia [Recovered/Resolved]
  - Throat irritation [Recovered/Resolved]
  - Occupational exposure to product [Recovered/Resolved]
  - Product quality issue [Recovered/Resolved]
  - Retching [Recovered/Resolved]

NARRATIVE: CASE EVENT DATE: 20181212
